FAERS Safety Report 16834257 (Version 1)
Quarter: 2019Q3

REPORT INFORMATION
  Report Type: Report from Study
  Country: CZ (occurrence: CZ)
  Receive Date: 20190920
  Receipt Date: 20190920
  Transmission Date: 20191005
  Serious: Yes (Other)
  Sender: FDA-Public Use
  Company Number: CZ-SAMSUNG BIOEPIS-SB-2019-27072

PATIENT
  Age: 58 Year
  Sex: Female

DRUGS (1)
  1. IMRALDI [Suspect]
     Active Substance: ADALIMUMAB
     Indication: INFLAMMATORY BOWEL DISEASE
     Dosage: UNKNOWN
     Route: 065
     Dates: end: 201904

REACTIONS (1)
  - Borrelia infection [Recovered/Resolved]

NARRATIVE: CASE EVENT DATE: 20190420
